FAERS Safety Report 6044701-0 (Version None)
Quarter: 2009Q1

REPORT INFORMATION
  Report Type: 
  Country: None (occurrence: None)
  Receive Date: 20090120
  Receipt Date: 20090112
  Transmission Date: 20090719
  Serious: Yes (Hospitalization, Other)
  Sender: FDA-Public Use
  Company Number: TW-ROXANE LABORATORIES, INC.-2009-RO-00050RO

PATIENT
  Age: 52 Year
  Sex: Male

DRUGS (6)
  1. LITHIUM CARBONATE [Suspect]
     Indication: BIPOLAR I DISORDER
     Dosage: 900MG
  2. OLANZAPINE [Suspect]
     Indication: DELUSION OF GRANDEUR
     Dosage: 5MG
  3. OLANZAPINE [Suspect]
     Dosage: 20MG
  4. OLANZAPINE [Suspect]
     Dosage: 15MG
  5. OLANZAPINE [Suspect]
  6. VALPROIC ACID [Suspect]
     Indication: BIPOLAR I DISORDER
     Dosage: 1000MG

REACTIONS (4)
  - AMNESIA [None]
  - DRUG INTERACTION [None]
  - RESTLESSNESS [None]
  - SOMNAMBULISM [None]
